FAERS Safety Report 7374684-2 (Version None)
Quarter: 2011Q1

REPORT INFORMATION
  Report Type: 
  Country: None (occurrence: None)
  Receive Date: 20110325
  Receipt Date: 20100721
  Transmission Date: 20110831
  Serious: No
  Sender: FDA-Public Use
  Company Number: US-MYLANLABS-2010S1013217

PATIENT
  Age: 34 Year
  Sex: Male

DRUGS (1)
  1. FENTANYL-100 [Suspect]
     Indication: NEURALGIA
     Dosage: Q 48
     Route: 062
     Dates: start: 20050101

REACTIONS (6)
  - NEURALGIA [None]
  - INCORRECT ROUTE OF DRUG ADMINISTRATION [None]
  - HYPERHIDROSIS [None]
  - DRUG TOLERANCE [None]
  - DENTAL CARIES [None]
  - DRUG INEFFECTIVE [None]
